FAERS Safety Report 15924060 (Version 2)
Quarter: 2019Q2

REPORT INFORMATION
  Report Type: Spontaneous
  Country: JP (occurrence: JP)
  Receive Date: 20190206
  Receipt Date: 20190403
  Transmission Date: 20190711
  Serious: Yes (Other)
  Sender: FDA-Public Use
  Company Number: JP-GLAXOSMITHKLINE-JP2019JPN017233

PATIENT
  Age: 82 Year
  Sex: Male

DRUGS (4)
  1. RELVAR ELLIPTA [Suspect]
     Active Substance: FLUTICASONE FUROATE\VILANTEROL TRIFENATATE
     Dosage: 200 ?G, UNK
     Route: 055
     Dates: start: 20170301
  2. AVOLVE [Suspect]
     Active Substance: DUTASTERIDE
     Dosage: UNK
     Route: 048
     Dates: start: 20180402, end: 20190118
  3. AVOLVE [Suspect]
     Active Substance: DUTASTERIDE
     Dosage: UNK
     Route: 048
     Dates: start: 20160509, end: 20160613
  4. AVOLVE [Suspect]
     Active Substance: DUTASTERIDE
     Indication: BENIGN PROSTATIC HYPERPLASIA
     Dosage: UNK
     Route: 048
     Dates: start: 20150507, end: 201509

REACTIONS (9)
  - Neoplasm malignant [Unknown]
  - N-terminal prohormone brain natriuretic peptide increased [Unknown]
  - Oedema peripheral [Unknown]
  - Nocturia [Unknown]
  - Arrhythmia [Unknown]
  - Dyspnoea [Unknown]
  - Sleep deficit [Unknown]
  - Renal function test abnormal [Unknown]
  - Liver function test increased [Unknown]

NARRATIVE: CASE EVENT DATE: 201606
